FAERS Safety Report 9536004 (Version 1)
Quarter: 2013Q2

REPORT INFORMATION
  Report Type: Spontaneous
  Country: US (occurrence: None)
  Receive Date: 20130507
  Receipt Date: 20130507
  Transmission Date: 20140414
  Serious: Yes (Other)
  Sender: FDA-Public Use
  Company Number: PHEH2012US006954

PATIENT
  Age: 9 Year
  Sex: Male
  Weight: 40.9 kg

DRUGS (2)
  1. AFINITOR [Suspect]
     Indication: TUBEROUS SCLEROSIS
     Route: 048
     Dates: start: 20120224
  2. TRILEPTAL (OXCARBAZEPINE) [Concomitant]

REACTIONS (5)
  - Hypercholesterolaemia [None]
  - Mucosal inflammation [None]
  - Oral pain [None]
  - Drug level decreased [None]
  - Drug level increased [None]
